FAERS Safety Report 18229884 (Version 2)
Quarter: 2020Q3

REPORT INFORMATION
  Report Type: Spontaneous
  Country: US (occurrence: US)
  Receive Date: 20200903
  Receipt Date: 20200911
  Transmission Date: 20201103
  Serious: Yes (Hospitalization)
  Sender: FDA-Public Use
  Company Number: US-LUNDBECK-DKLU3020636

PATIENT
  Age: 88 Year
  Sex: Male

DRUGS (2)
  1. NORTHERA [Suspect]
     Active Substance: DROXIDOPA
     Indication: AUTONOMIC NEUROPATHY
     Dosage: SCHEDULE B, TITRATION
     Route: 048
     Dates: start: 20200811
  2. NORTHERA [Suspect]
     Active Substance: DROXIDOPA
     Indication: DIZZINESS
     Dosage: SCHEDULE B, TITRATION COMPLETE
     Route: 048

REACTIONS (1)
  - Pneumonia aspiration [Not Recovered/Not Resolved]

NARRATIVE: CASE EVENT DATE: 20200829
